FAERS Safety Report 22365650 (Version 3)
Quarter: 2023Q2

REPORT INFORMATION
  Report Type: Spontaneous
  Country: US (occurrence: US)
  Receive Date: 20230525
  Receipt Date: 20230617
  Transmission Date: 20230722
  Serious: No
  Sender: FDA-Public Use
  Company Number: US-002147023-NVSC2023US114502

PATIENT
  Sex: Female

DRUGS (1)
  1. COMBIPATCH [Suspect]
     Active Substance: ESTRADIOL\NORETHINDRONE ACETATE
     Indication: Product used for unknown indication
     Dosage: 0.05/0.14 MG
     Route: 062

REACTIONS (5)
  - Device issue [Recovered/Resolved]
  - Product adhesion issue [Recovered/Resolved]
  - Device defective [Unknown]
  - Product administered at inappropriate site [Not Recovered/Not Resolved]
  - Product storage error [Recovered/Resolved]
